FAERS Safety Report 20806970 (Version 2)
Quarter: 2023Q1

REPORT INFORMATION
  Report Type: Other
  Country: US (occurrence: None)
  Receive Date: 20220510
  Receipt Date: 20230227
  Transmission Date: 20230417
  Serious: Yes (Death)
  Sender: FDA-Public Use
  Company Number: US-ROCHE-3091795

PATIENT
  Age: 74 Year
  Sex: Male
  Weight: 86.714 kg

DRUGS (21)
  1. VENCLEXTA [Suspect]
     Active Substance: VENETOCLAX
     Indication: Chronic lymphocytic leukaemia (in remission)
     Dosage: LINE OF THERAPY:THIRD OR GREATER, TAKE WHOLE WITH WATER AND MEAL AT APPROXIMATELY THE SAME TIME EACH
     Route: 048
  2. VENCLEXTA [Suspect]
     Active Substance: VENETOCLAX
     Dosage: TAKE 2 TABLET(S) BY MOUTH EVERY DAY. TAKE WITH WATER AND A MEAL AT APPROXIMATELY THE?SAME TIME EACH
     Route: 048
  3. VENCLEXTA [Suspect]
     Active Substance: VENETOCLAX
     Dosage: DOSE PACK 1 PACKAGE ORALLY AS DIRECTED ON STARTER PACK, START ON C1D22 FOR 5 WK RAMP UP. TAKE WITH W
     Route: 048
  4. OBINUTUZUMAB [Suspect]
     Active Substance: OBINUTUZUMAB
     Indication: Chronic lymphocytic leukaemia
     Dosage: 1000MG/ 40ML SOLUTION
     Route: 042
     Dates: start: 20220328
  5. OBINUTUZUMAB [Suspect]
     Active Substance: OBINUTUZUMAB
     Dosage: 1000MG/ 40ML SOLUTION, ONCE, ADMIX FLUID 0.9% SODIUM CHLORIDE VOLUME-250ML, C1D5 ONLY. DILUTE IN 250
     Route: 042
     Dates: start: 20220328
  6. EPINEPHRINE [Concomitant]
     Active Substance: EPINEPHRINE
     Indication: Hypersensitivity
     Dosage: 1MG/1 ML SOLUTION
     Route: 030
  7. DIPHENHYDRAMINE [Concomitant]
     Active Substance: DIPHENHYDRAMINE
     Indication: Hypersensitivity
     Route: 042
  8. FAMOTIDINE [Concomitant]
     Active Substance: FAMOTIDINE
     Indication: Hypersensitivity
     Dosage: 10MG/ML SOLUTION
     Route: 042
  9. HYDROCORTISONE [Concomitant]
     Active Substance: HYDROCORTISONE
     Indication: Hypersensitivity
     Route: 042
  10. METHYLPREDNISOLONE [Concomitant]
     Active Substance: METHYLPREDNISOLONE
     Indication: Hypersensitivity
     Route: 042
  11. ALLOPURINOL [Concomitant]
     Active Substance: ALLOPURINOL
     Dosage: START 2-3 DAYS PRIOR OF OBINUTUZUMAB AND VENCLEXTA IF AT RISK OF TUMOR LYSIS SYNDROME
     Route: 048
  12. ALLOPURINOL [Concomitant]
     Active Substance: ALLOPURINOL
     Dosage: 1 TAB DAILY IN CLINIC
     Route: 048
  13. FAMCICLOVIR [Concomitant]
     Active Substance: FAMCICLOVIR
     Dosage: TAKE 1 TABLET 2 TIMES A DAY
     Route: 048
  14. ALBUTEROL SULFATE [Concomitant]
     Active Substance: ALBUTEROL SULFATE
     Route: 045
  15. ASPIRIN [Concomitant]
     Active Substance: ASPIRIN
     Dosage: MG TABLET DR, 1 TABLET QD
     Route: 048
  16. FERROUS SULFATE [Concomitant]
     Active Substance: FERROUS SULFATE
     Dosage: 65MG IRON TABLET
     Route: 048
  17. METOPROLOL [Concomitant]
     Active Substance: METOPROLOL
  18. OLMESARTAN [Concomitant]
     Active Substance: OLMESARTAN
     Dosage: 1 TABLET QD
     Route: 048
  19. OMEPRAZOLE [Concomitant]
     Active Substance: OMEPRAZOLE
     Dosage: IN CLINIC
     Route: 048
  20. PRAVASTATIN SODIUM [Concomitant]
     Active Substance: PRAVASTATIN SODIUM
     Route: 048
  21. TENOFOVIR [Concomitant]
     Active Substance: TENOFOVIR
     Dosage: IN CLINIC
     Route: 048

REACTIONS (1)
  - Death [Fatal]

NARRATIVE: CASE EVENT DATE: 20220411
